FAERS Safety Report 4585669-3 (Version None)
Quarter: 2005Q1

REPORT INFORMATION
  Report Type: 
  Country: None (occurrence: None)
  Receive Date: 20050217
  Receipt Date: 20050207
  Transmission Date: 20050727
  Serious: Yes (Life-Threatening, Disabling)
  Sender: FDA-Public Use
  Company Number: US-MERCK-0502USA00663

PATIENT
  Age: 44 Year
  Sex: Male

DRUGS (9)
  1. VIOXX [Suspect]
     Indication: PAIN MANAGEMENT
     Route: 048
  2. DEPAKOTE [Concomitant]
     Route: 065
  3. PROTONIX [Concomitant]
     Route: 065
  4. MS CONTIN [Concomitant]
     Route: 065
  5. AVAPRO [Concomitant]
     Route: 065
  6. SYNTHROID [Concomitant]
     Route: 065
  7. ATIVAN [Concomitant]
     Route: 065
  8. EFFEXOR [Concomitant]
     Route: 065
  9. TRAZODONE HYDROCHLORIDE [Concomitant]
     Route: 065

REACTIONS (6)
  - CHEST PAIN [None]
  - HEADACHE [None]
  - INSOMNIA [None]
  - OEDEMA PERIPHERAL [None]
  - THROMBOSIS [None]
  - VEIN DISORDER [None]
